FAERS Safety Report 4477461-5 (Version None)
Quarter: 2004Q4

REPORT INFORMATION
  Report Type: 
  Country: None (occurrence: None)
  Receive Date: 20041015
  Receipt Date: 20040930
  Transmission Date: 20050328
  Serious: Yes (Hospitalization, Other)
  Sender: FDA-Public Use
  Company Number: 2004S1002943

PATIENT
  Age: 58 Year
  Sex: Female

DRUGS (7)
  1. CLOZAPINE [Suspect]
     Indication: SCHIZOPHRENIA, PARANOID TYPE
     Dosage: 300MG Q AM AND 400MG HS, ORAL
     Route: 048
     Dates: end: 20040924
  2. LITHIUM [Concomitant]
  3. DOCUSATE [Concomitant]
  4. CALCIUM WITH VITAMIN D [Concomitant]
  5. LEVOTHYROXINE SODIUM [Concomitant]
  6. LORATADINE [Concomitant]
  7. TOLTERODINE LA [Concomitant]

REACTIONS (3)
  - CHRONIC OBSTRUCTIVE AIRWAYS DISEASE EXACERBATED [None]
  - LEUKOPENIA [None]
  - PNEUMONIA [None]
